FAERS Safety Report 8343373-X (Version None)
Quarter: 2012Q2

REPORT INFORMATION
  Report Type: 
  Country: None (occurrence: None)
  Receive Date: 20120508
  Receipt Date: 20120427
  Transmission Date: 20120825
  Serious: Yes (Life-Threatening, Hospitalization)
  Sender: FDA-Public Use
  Company Number: FR-BRISTOL-MYERS SQUIBB COMPANY-16565293

PATIENT
  Age: 89 Year
  Sex: Female
  Weight: 57 kg

DRUGS (9)
  1. XANAX [Suspect]
  2. PLAVIX [Suspect]
  3. ZOLPIDEM [Suspect]
  4. IRBESARTAN [Suspect]
  5. ATORVASTATIN [Suspect]
  6. AMLODIPINE BESYLATE [Suspect]
  7. IMMOVANE [Concomitant]
     Dosage: 0-0-0-1
  8. LEVOTHYROXINE SODIUM [Concomitant]
  9. TANGANIL [Concomitant]
     Dosage: 1DF=2TABS.

REACTIONS (3)
  - HYPOTENSION [None]
  - RENAL FAILURE ACUTE [None]
  - MULTIPLE DRUG OVERDOSE INTENTIONAL [None]
